FAERS Safety Report 7250279-6 (Version None)
Quarter: 2011Q1

REPORT INFORMATION
  Report Type: 
  Country: None (occurrence: None)
  Receive Date: 20110128
  Receipt Date: 20110120
  Transmission Date: 20110831
  Serious: Yes (Other)
  Sender: FDA-Public Use
  Company Number: BR-SANOFI-AVENTIS-2011SA004232

PATIENT
  Sex: Female
  Weight: 77 kg

DRUGS (4)
  1. AUTOPEN 24 [Suspect]
  2. AMARYL [Concomitant]
     Route: 048
  3. JANUMET [Concomitant]
     Route: 048
  4. LANTUS [Suspect]
     Dosage: BEFORE LUNCH
     Route: 058
     Dates: start: 20070101

REACTIONS (10)
  - CATARACT [None]
  - BLINDNESS [None]
  - CONDITION AGGRAVATED [None]
  - TREMOR [None]
  - HYPOGLYCAEMIA [None]
  - HYPERGLYCAEMIA [None]
  - HYPERHIDROSIS [None]
  - UNEVALUABLE EVENT [None]
  - FEELING ABNORMAL [None]
  - ASTHENIA [None]
